FAERS Safety Report 20029746 (Version 1)
Quarter: 2021Q4

REPORT INFORMATION
  Report Type: Spontaneous
  Country: CA (occurrence: CA)
  Receive Date: 20211103
  Receipt Date: 20211103
  Transmission Date: 20220303
  Serious: Yes (Death, Other)
  Sender: FDA-Public Use
  Company Number: CA-PFIZER INC-2020130949

PATIENT
  Age: 70 Year
  Sex: Female

DRUGS (10)
  1. IBRANCE [Suspect]
     Active Substance: PALBOCICLIB
     Indication: Breast disorder
     Dosage: 125 MG, 1X/DAY FOR 21 DAYS IN A ROW, STOP FOR 7 DAYS
     Route: 048
     Dates: start: 20200224
  2. IBRANCE [Suspect]
     Active Substance: PALBOCICLIB
     Dosage: 100 MG
  3. IBRANCE [Suspect]
     Active Substance: PALBOCICLIB
     Dosage: 75 MG, DAILY FOR 21 DAYS OUT OF 28 DAY CYCLE
     Route: 048
     Dates: start: 20200710
  4. IRBESARTAN [Concomitant]
     Active Substance: IRBESARTAN
     Dosage: 75 MG, DAILY
  5. HYDROXYCHLOROQUINE [Concomitant]
     Active Substance: HYDROXYCHLOROQUINE
     Dosage: 250 MG, DAILY
  6. HYDROMORPHONE [Concomitant]
     Active Substance: HYDROMORPHONE
     Dosage: 1 MG, EVERY 4 HRS
  7. VITAMIN D NOS [Concomitant]
     Active Substance: VITAMIN D NOS
     Dosage: 50000 IU, WEEKLY
  8. LETROZOLE [Concomitant]
     Active Substance: LETROZOLE
     Dosage: 2.5 MG, DAILY
     Route: 048
     Dates: start: 20200710
  9. METOCLOPRAMIDE [Concomitant]
     Active Substance: METOCLOPRAMIDE
     Indication: Nausea
     Dosage: 10 MG Q4-8H PRN
     Route: 048
     Dates: start: 20200710
  10. METOCLOPRAMIDE [Concomitant]
     Active Substance: METOCLOPRAMIDE
     Indication: Vomiting

REACTIONS (4)
  - Death [Fatal]
  - Full blood count abnormal [Unknown]
  - Cough [Unknown]
  - Dyspnoea [Unknown]
